FAERS Safety Report 6536121-7 (Version None)
Quarter: 2010Q1

REPORT INFORMATION
  Report Type: 
  Country: None (occurrence: None)
  Receive Date: 20100113
  Receipt Date: 20091008
  Transmission Date: 20100710
  Serious: No
  Sender: FDA-Public Use
  Company Number: US-ALLERGAN-0913952US

PATIENT
  Age: 43 Year
  Sex: Female

DRUGS (5)
  1. LATISSE [Suspect]
     Indication: HYPOTRICHOSIS
     Dosage: 1 GTT, QHS
     Route: 061
  2. LATISSE [Suspect]
     Dosage: 1 GTT, QHS
     Route: 061
     Dates: start: 20090801
  3. LEXAPRO [Concomitant]
     Indication: PREMENSTRUAL SYNDROME
     Dosage: UNK
  4. MASCARA [Concomitant]
     Dosage: UNK
  5. EYELINER [Concomitant]
     Dosage: UNK

REACTIONS (1)
  - MADAROSIS [None]
